FAERS Safety Report 11018638 (Version 2)
Quarter: 2015Q2

REPORT INFORMATION
  Report Type: Spontaneous
  Country: US (occurrence: US)
  Receive Date: 20150412
  Receipt Date: 20150524
  Transmission Date: 20150821
  Serious: Yes (Other)
  Sender: FDA-Public Use
  Company Number: US-JNJFOC-20130201342

PATIENT

DRUGS (9)
  1. MESNA. [Suspect]
     Active Substance: MESNA
     Indication: TRANSITIONAL CELL CARCINOMA
     Dosage: DAYS 1 THROUGH 4
     Route: 065
  2. MESNA. [Suspect]
     Active Substance: MESNA
     Indication: TRANSITIONAL CELL CARCINOMA
     Dosage: INFUSED OVER 15 MINUTES AT HOURS ZERO, 3, 7, AND 11 DAILY ON DAYS 1-4
     Route: 065
  3. GEMCITABINE [Suspect]
     Active Substance: GEMCITABINE\GEMCITABINE HYDROCHLORIDE
     Indication: TRANSITIONAL CELL CARCINOMA
     Dosage: ON DAYS 2 TO 4
     Route: 065
  4. SODIUM ACETATE. [Concomitant]
     Active Substance: SODIUM ACETATE
     Indication: FLUID REPLACEMENT
     Dosage: FREQUENT INFUSION
     Route: 065
  5. DOXORUBICIN [Suspect]
     Active Substance: DOXORUBICIN
     Indication: TRANSITIONAL CELL CARCINOMA
     Dosage: ON DAY 3
     Route: 042
  6. DOXORUBICIN [Suspect]
     Active Substance: DOXORUBICIN
     Indication: TRANSITIONAL CELL CARCINOMA
     Dosage: OVER 15 MINUTES OVER 12-18 HOURS INFUSED THROUGH A CENTRAL LINE ON DAY 3 ONLY
     Route: 042
  7. IFOSFAMIDE. [Suspect]
     Active Substance: IFOSFAMIDE
     Indication: TRANSITIONAL CELL CARCINOMA
     Dosage: INFUSED OVER 3 HOURS DAILY ON DAYS 1-4
     Route: 065
  8. IFOSFAMIDE. [Suspect]
     Active Substance: IFOSFAMIDE
     Indication: TRANSITIONAL CELL CARCINOMA
     Route: 065
  9. GEMCITABINE [Suspect]
     Active Substance: GEMCITABINE\GEMCITABINE HYDROCHLORIDE
     Indication: TRANSITIONAL CELL CARCINOMA
     Dosage: OVER 30 MINUTES ON DAYS 2 AND 4 ONLY
     Route: 065

REACTIONS (2)
  - Vomiting [Unknown]
  - Product use issue [Unknown]
